FAERS Safety Report 8321883-9 (Version None)
Quarter: 2012Q2

REPORT INFORMATION
  Report Type: 
  Country: None (occurrence: None)
  Receive Date: 20120430
  Receipt Date: 20120424
  Transmission Date: 20120825
  Serious: Yes (Other)
  Sender: FDA-Public Use
  Company Number: DE-GLAXOSMITHKLINE-D0075077A

PATIENT
  Sex: Female

DRUGS (3)
  1. PROMACTA [Suspect]
     Indication: IDIOPATHIC THROMBOCYTOPENIC PURPURA
     Dosage: 50MG VARIABLE DOSE
     Route: 048
     Dates: start: 20110101
  2. OMEPRAZOLE [Concomitant]
     Dosage: 20MG PER DAY
     Route: 065
  3. TORSEMIDE [Concomitant]
     Dosage: 20MG PER DAY
     Route: 065

REACTIONS (3)
  - DERMATITIS [None]
  - CONDITION AGGRAVATED [None]
  - SKIN NECROSIS [None]
